FAERS Safety Report 10524415 (Version 2)
Quarter: 2014Q4

REPORT INFORMATION
  Report Type: Spontaneous
  Country: SE (occurrence: SE)
  Receive Date: 20141017
  Receipt Date: 20141230
  Transmission Date: 20150528
  Serious: Yes (Hospitalization)
  Sender: FDA-Public Use
  Company Number: SE-ASTRAZENECA-2014SE77027

PATIENT
  Age: 28 Year
  Sex: Female

DRUGS (12)
  1. SOBRIL [Suspect]
     Active Substance: OXAZEPAM
     Route: 048
     Dates: start: 20130628, end: 20130628
  2. PULMICORT TURBUHALER [Concomitant]
     Active Substance: BUDESONIDE
  3. MEDIKINET (MEDICE ARZNEIMITTEL PLTTER G MBH AND CO. KG) [Suspect]
     Active Substance: METHYLPHENIDATE
     Route: 048
     Dates: start: 20130628, end: 20130628
  4. BRICANYL [Concomitant]
     Active Substance: TERBUTALINE SULFATE
  5. NEOVLETTA [Concomitant]
     Active Substance: ETHINYL ESTRADIOL\LEVONORGESTREL
  6. SOBRIL [Suspect]
     Active Substance: OXAZEPAM
     Route: 048
     Dates: start: 20130416
  7. LAMICTAL [Concomitant]
     Active Substance: LAMOTRIGINE
  8. STRATTERA [Concomitant]
     Active Substance: ATOMOXETINE HYDROCHLORIDE
  9. SEROQUEL [Suspect]
     Active Substance: QUETIAPINE FUMARATE
     Route: 048
     Dates: start: 20130416
  10. SEROQUEL [Suspect]
     Active Substance: QUETIAPINE FUMARATE
     Dosage: 10-16 TABLETS
     Route: 048
     Dates: start: 20130628, end: 20130628
  11. MEDIKINET (MEDICE ARZNEIMITTEL PLTTER GMBH AND CO. KG) [Suspect]
     Active Substance: METHYLPHENIDATE
     Route: 048
     Dates: start: 20130531
  12. CIPRALEX [Concomitant]
     Active Substance: ESCITALOPRAM OXALATE

REACTIONS (2)
  - Toxicity to various agents [Recovered/Resolved]
  - Tachycardia [Recovered/Resolved]

NARRATIVE: CASE EVENT DATE: 20130628
